FAERS Safety Report 14486735 (Version 2)
Quarter: 2018Q1

REPORT INFORMATION
  Report Type: Report from Study
  Country: US (occurrence: US)
  Receive Date: 20180205
  Receipt Date: 20180321
  Transmission Date: 20180509
  Serious: Yes (Hospitalization, Other)
  Sender: FDA-Public Use
  Company Number: US-TAKEDA-2018TUS002612

PATIENT
  Age: 34 Year
  Sex: Female
  Weight: 97.98 kg

DRUGS (15)
  1. CAFFEINE. [Concomitant]
     Active Substance: CAFFEINE
     Dosage: 1 UNK, UNK
     Route: 048
     Dates: start: 20170720
  2. DULERA [Concomitant]
     Active Substance: FORMOTEROL FUMARATE DIHYDRATE\MOMETASONE FUROATE
     Indication: ASTHMA
     Dosage: UNK
     Dates: start: 20170720
  3. PROTONIX                           /00661201/ [Concomitant]
     Active Substance: OMEPRAZOLE
     Indication: GASTROOESOPHAGEAL REFLUX DISEASE
     Dosage: 40 MG, QD
     Route: 048
     Dates: start: 20170720
  4. PROVENTIL [Concomitant]
     Active Substance: ALBUTEROL
     Indication: ASTHMA
     Dosage: UNK UNK, QD
     Dates: start: 20170720
  5. BABY ASPIRIN [Concomitant]
     Active Substance: ASPIRIN
     Indication: PLACENTAL DISORDER
     Dosage: 81 MG, QD
     Route: 048
     Dates: start: 20171130
  6. BENADRYL [Concomitant]
     Active Substance: DIPHENHYDRAMINE HYDROCHLORIDE
     Indication: HYPERSENSITIVITY
     Dosage: UNK, UNK
     Route: 048
     Dates: start: 20170720
  7. SINGULAIR [Concomitant]
     Active Substance: MONTELUKAST SODIUM
     Indication: ASTHMA
     Dosage: 10 MG, QD
     Route: 048
     Dates: start: 20170720
  8. FLU VACCINE VII [Concomitant]
     Active Substance: INFLUENZA VIRUS VACCINE
     Dosage: UNK
     Route: 030
  9. BENADRYL [Concomitant]
     Active Substance: DIPHENHYDRAMINE HYDROCHLORIDE
     Indication: PRURITUS
  10. TYLENOL [Concomitant]
     Active Substance: ACETAMINOPHEN
     Indication: TOOTHACHE
     Dosage: UNK
     Route: 048
     Dates: start: 20170720
  11. VEDOLIZUMAB [Suspect]
     Active Substance: VEDOLIZUMAB
     Indication: COLITIS ULCERATIVE
     Dosage: 300 MG, UNK
     Route: 065
     Dates: start: 20170530
  12. DOCOSAHEXAENOIC ACID [Concomitant]
     Active Substance: DOCONEXENT
     Dosage: UNK UNK, QD
     Route: 048
     Dates: start: 20170801
  13. TYLENOL [Concomitant]
     Active Substance: ACETAMINOPHEN
     Indication: BILIARY COLIC
  14. CLINDAMYCIN. [Concomitant]
     Active Substance: CLINDAMYCIN
     Indication: TOOTH EXTRACTION
     Dosage: UNK
     Route: 048
  15. MUCINEX EXPECTORANT                /00048001/ [Concomitant]
     Indication: SINUSITIS
     Dosage: UNK
     Route: 048

REACTIONS (9)
  - Pancreatitis [Unknown]
  - Sinusitis [Recovered/Resolved]
  - Vulvovaginal swelling [Recovered/Resolved]
  - Tooth disorder [Recovered/Resolved]
  - Cholelithiasis [Recovered/Resolved]
  - Fall [Recovered/Resolved]
  - Gastrooesophageal reflux disease [Unknown]
  - Nasopharyngitis [Recovered/Resolved]
  - Pregnancy [Unknown]

NARRATIVE: CASE EVENT DATE: 20170720
